FAERS Safety Report 7508616-0 (Version None)
Quarter: 2011Q2

REPORT INFORMATION
  Report Type: 
  Country: None (occurrence: None)
  Receive Date: 20110527
  Receipt Date: 20110218
  Transmission Date: 20111010
  Serious: No
  Sender: FDA-Public Use
  Company Number: A0915382A

PATIENT
  Age: 51 Year
  Sex: Female
  Weight: 97.5 kg

DRUGS (2)
  1. LASIX [Suspect]
  2. FLOLAN [Suspect]
     Dates: start: 20081217

REACTIONS (2)
  - DERMATITIS [None]
  - PRURITUS [None]
